FAERS Safety Report 22089037 (Version 1)
Quarter: 2023Q1

REPORT INFORMATION
  Report Type: Spontaneous
  Country: GB (occurrence: GB)
  Receive Date: 20230313
  Receipt Date: 20230313
  Transmission Date: 20230418
  Serious: Yes (Other)
  Sender: FDA-Public Use
  Company Number: GB-MYLANLABS-2023M1025467

PATIENT
  Sex: Male

DRUGS (1)
  1. CLOZARIL [Suspect]
     Active Substance: CLOZAPINE
     Indication: Schizophrenia
     Dosage: UNK
     Route: 048
     Dates: start: 20210702, end: 20230211

REACTIONS (5)
  - Suicidal ideation [Unknown]
  - Migraine [Unknown]
  - Depressed mood [Unknown]
  - Sedation [Unknown]
  - Headache [Unknown]
